FAERS Safety Report 13521560 (Version 1)
Quarter: 2017Q2

REPORT INFORMATION
  Report Type: Spontaneous
  Country: US (occurrence: US)
  Receive Date: 20170506
  Receipt Date: 20170506
  Transmission Date: 20170830
  Serious: Yes (Other)
  Sender: FDA-Public Use
  Company Number: None

PATIENT
  Age: 67 Year
  Sex: Female
  Weight: 76.5 kg

DRUGS (15)
  1. MAXALT [Concomitant]
     Active Substance: RIZATRIPTAN BENZOATE
  2. MULTIVITAMIN [Concomitant]
     Active Substance: VITAMINS
  3. LIPITOR [Concomitant]
     Active Substance: ATORVASTATIN CALCIUM
  4. TYLENOL [Concomitant]
     Active Substance: ACETAMINOPHEN
  5. XIIDRA [Suspect]
     Active Substance: LIFITEGRAST
     Indication: DRY EYE
     Dosage: ?          QUANTITY:1 DROP(S);?
     Route: 047
     Dates: start: 20170418, end: 20170424
  6. PROCARDIA XL [Concomitant]
     Active Substance: NIFEDIPINE
  7. CALCIUM W/D3 [Concomitant]
  8. SYSTANE (HYPROMELLOSE 2910 (4000 MPA.S)) [Concomitant]
     Active Substance: HYPROMELLOSE 2910 (4000 MPA.S)
  9. HCTZ [Concomitant]
     Active Substance: HYDROCHLOROTHIAZIDE
  10. FLUTICASONE. [Concomitant]
     Active Substance: FLUTICASONE
  11. PROPIONATE [Concomitant]
  12. RESTASIS [Concomitant]
     Active Substance: CYCLOSPORINE
  13. COQ10 [Concomitant]
     Active Substance: UBIDECARENONE
  14. ASPIRIN. [Concomitant]
     Active Substance: ASPIRIN
  15. LIPITOR [Concomitant]
     Active Substance: ATORVASTATIN CALCIUM

REACTIONS (8)
  - Corneal opacity [None]
  - Vision blurred [None]
  - Lacrimation increased [None]
  - Eye discharge [None]
  - Eye irritation [None]
  - Photophobia [None]
  - Conjunctivitis [None]
  - Impaired driving ability [None]

NARRATIVE: CASE EVENT DATE: 20170418
